FAERS Safety Report 7336569-7 (Version None)
Quarter: 2011Q1

REPORT INFORMATION
  Report Type: 
  Country: None (occurrence: None)
  Receive Date: 20110307
  Receipt Date: 20110225
  Transmission Date: 20110831
  Serious: Yes (Disabling, Other)
  Sender: FDA-Public Use
  Company Number: US-MERCK-0707USA02692

PATIENT
  Age: 52 Year
  Sex: Female
  Weight: 79 kg

DRUGS (8)
  1. FOSAMAX [Suspect]
     Indication: OSTEOPOROSIS
     Route: 048
     Dates: start: 20040301, end: 20060606
  2. ZOMETA [Suspect]
     Route: 065
  3. HYDROCODONE BITARTRATE [Concomitant]
     Indication: PAIN
     Route: 065
     Dates: start: 20000101
  4. TRAZODONE HYDROCHLORIDE [Concomitant]
     Indication: SLEEP DISORDER
     Route: 065
     Dates: start: 20010101
  5. PRINIVIL [Concomitant]
     Indication: HYPERTENSION
     Route: 065
     Dates: start: 19900101
  6. FOSAMAX [Suspect]
     Indication: OSTEOPENIA
     Route: 048
     Dates: start: 20040301, end: 20060606
  7. EFFEXOR [Concomitant]
     Indication: DEPRESSION
     Route: 065
     Dates: start: 20030101
  8. PROZAC [Concomitant]
     Indication: DEPRESSION
     Route: 065
     Dates: start: 20030101

REACTIONS (12)
  - FALL [None]
  - ABDOMINAL PAIN UPPER [None]
  - DEPRESSION [None]
  - DIZZINESS [None]
  - SPONDYLOLISTHESIS [None]
  - LUMBAR RADICULOPATHY [None]
  - OSTEONECROSIS OF JAW [None]
  - HEADACHE [None]
  - OSTEOMYELITIS [None]
  - ROTATOR CUFF SYNDROME [None]
  - MYALGIA [None]
  - FIBROMYALGIA [None]
